FAERS Safety Report 10600605 (Version 2)
Quarter: 2015Q1

REPORT INFORMATION
  Report Type: Spontaneous
  Country: US (occurrence: None)
  Receive Date: 20141119
  Receipt Date: 20150220
  Transmission Date: 20150720
  Serious: No
  Sender: FDA-Public Use
  Company Number: 1000070875

PATIENT
  Age: 71 Year
  Sex: Female

DRUGS (1)
  1. TUDORZA PRESSAIR [Suspect]
     Active Substance: ACLIDINIUM BROMIDE
     Indication: CHRONIC OBSTRUCTIVE PULMONARY DISEASE
     Dosage: 800 MCG, RERSPIRATORY
     Route: 055
     Dates: start: 20140905

REACTIONS (5)
  - Sinusitis [None]
  - Oral candidiasis [None]
  - Weight decreased [None]
  - Oropharyngeal pain [None]
  - Nasal discomfort [None]

NARRATIVE: CASE EVENT DATE: 201409
